FAERS Safety Report 6746142-7 (Version None)
Quarter: 2010Q2

REPORT INFORMATION
  Report Type: 
  Country: None (occurrence: None)
  Receive Date: 20100528
  Receipt Date: 20100222
  Transmission Date: 20101027
  Serious: No
  Sender: FDA-Public Use
  Company Number: US-ASTRAZENECA-2010SE02633

PATIENT
  Sex: Female

DRUGS (3)
  1. PRILOSEC [Suspect]
     Indication: GASTROOESOPHAGEAL REFLUX DISEASE
     Route: 048
     Dates: end: 20040101
  2. CELEBREX [Concomitant]
  3. ZOLOFT [Concomitant]
     Indication: ANXIETY

REACTIONS (7)
  - ANXIETY [None]
  - ARTHRALGIA [None]
  - DRUG INEFFECTIVE [None]
  - FIBROMYALGIA [None]
  - GASTRITIS [None]
  - INSOMNIA [None]
  - POLYP [None]
